FAERS Safety Report 6203006-5 (Version None)
Quarter: 2009Q2

REPORT INFORMATION
  Report Type: 
  Country: None (occurrence: None)
  Receive Date: 20090521
  Receipt Date: 20090508
  Transmission Date: 20091009
  Serious: Yes (Hospitalization)
  Sender: FDA-Public Use
  Company Number: 2009AL002904

PATIENT
  Age: 59 Year
  Sex: Female
  Weight: 54 kg

DRUGS (7)
  1. LOVASTATIN [Suspect]
     Indication: HYPERCHOLESTEROLAEMIA
     Dosage: 40 MG;QD
  2. DANAZOL [Concomitant]
  3. CALCIUM CARBONATE [Concomitant]
  4. LABETALOL HCL [Concomitant]
  5. GLIPIZIDE [Concomitant]
  6. SILYMARIN [Concomitant]
  7. ALPRAZOLAM [Concomitant]

REACTIONS (31)
  - ANAEMIA [None]
  - ANION GAP INCREASED [None]
  - ASTHENIA [None]
  - BLOOD CALCIUM DECREASED [None]
  - BLOOD CHLORIDE DECREASED [None]
  - BLOOD CREATININE INCREASED [None]
  - BLOOD GLUCOSE INCREASED [None]
  - BLOOD PRESSURE INCREASED [None]
  - BLOOD THYROID STIMULATING HORMONE INCREASED [None]
  - BLOOD UREA INCREASED [None]
  - BONE MARROW FAILURE [None]
  - DIPLOPIA [None]
  - DIZZINESS [None]
  - DYSARTHRIA [None]
  - DYSPHAGIA [None]
  - ELECTROLYTE IMBALANCE [None]
  - GINGIVAL BLEEDING [None]
  - HEPATITIS [None]
  - HYPOAESTHESIA [None]
  - INCONTINENCE [None]
  - LIVER DISORDER [None]
  - MYOPATHY [None]
  - PANCREATITIS [None]
  - PLATELET COUNT INCREASED [None]
  - QUADRIPARESIS [None]
  - RENAL ATROPHY [None]
  - RHABDOMYOLYSIS [None]
  - SENSORY LOSS [None]
  - THROMBOCYTOPENIA [None]
  - THYROID FUNCTION TEST ABNORMAL [None]
  - THYROXINE DECREASED [None]
